FAERS Safety Report 10427426 (Version 3)
Quarter: 2014Q3

REPORT INFORMATION
  Report Type: Report from Study
  Country: US (occurrence: US)
  Receive Date: 20140903
  Receipt Date: 20140910
  Transmission Date: 20150326
  Serious: Yes (Hospitalization)
  Sender: FDA-Public Use
  Company Number: US-ACTELION-A-US2014-104527

PATIENT
  Age: 57 Year
  Sex: Female

DRUGS (4)
  1. VIAGRA [Concomitant]
     Active Substance: SILDENAFIL CITRATE
  2. LETAIRIS [Concomitant]
     Active Substance: AMBRISENTAN
     Indication: PRODUCT USED FOR UNKNOWN INDICATION
     Route: 048
  3. COUMADIN [Concomitant]
     Active Substance: WARFARIN SODIUM
  4. VENTAVIS [Suspect]
     Active Substance: ILOPROST
     Indication: PULMONARY ARTERIAL HYPERTENSION
     Dosage: 5 MCG, 1 TIME PER DAY
     Route: 055
     Dates: start: 20110908

REACTIONS (7)
  - Dyspnoea [Recovering/Resolving]
  - Drug dose omission [Unknown]
  - Fall [Recovering/Resolving]
  - Anxiety [Recovering/Resolving]
  - Cardiac disorder [Recovering/Resolving]
  - Syncope [Recovering/Resolving]
  - Head injury [Recovering/Resolving]
